FAERS Safety Report 16624852 (Version 1)
Quarter: 2019Q3

REPORT INFORMATION
  Report Type: Spontaneous
  Country: US (occurrence: US)
  Receive Date: 20190611
  Receipt Date: 20190611
  Transmission Date: 20191004
  Serious: No
  Sender: FDA-Public Use
  Company Number: None

PATIENT
  Age: 12 Year
  Sex: Female

DRUGS (1)
  1. MEKINIST [Suspect]
     Active Substance: TRAMETINIB DIMETHYL SULFOXIDE
     Dates: start: 20181026

REACTIONS (4)
  - Gastrointestinal disorder [None]
  - Rash [None]
  - Gastrooesophageal reflux disease [None]
  - Constipation [None]

NARRATIVE: CASE EVENT DATE: 20190514
